FAERS Safety Report 14346463 (Version 2)
Quarter: 2018Q1

REPORT INFORMATION
  Report Type: Report from Study
  Country: ES (occurrence: ES)
  Receive Date: 20180103
  Receipt Date: 20180115
  Transmission Date: 20180509
  Serious: Yes (Death)
  Sender: FDA-Public Use
  Company Number: ES-JNJFOC-20151113688

PATIENT
  Sex: Female
  Weight: 58 kg

DRUGS (2)
  1. IBRUTINIB [Suspect]
     Active Substance: IBRUTINIB
     Indication: MANTLE CELL LYMPHOMA
     Route: 048
     Dates: start: 20150716, end: 20151110
  2. ACYCLOVIR. [Concomitant]
     Active Substance: ACYCLOVIR
     Indication: ORAL HERPES
     Route: 048
     Dates: start: 20150505, end: 20151110

REACTIONS (3)
  - Pulmonary embolism [Fatal]
  - Mantle cell lymphoma [Fatal]
  - Neutropenia [Unknown]

NARRATIVE: CASE EVENT DATE: 2015
